FAERS Safety Report 8072645-1 (Version None)
Quarter: 2012Q1

REPORT INFORMATION
  Report Type: 
  Country: None (occurrence: None)
  Receive Date: 20120126
  Receipt Date: 20120116
  Transmission Date: 20120608
  Serious: Yes (Hospitalization)
  Sender: FDA-Public Use
  Company Number: SE-SANOFI-AVENTIS-2012SA003134

PATIENT
  Age: 87 Year
  Sex: Male

DRUGS (3)
  1. ZOLPIDEM TARTRATE [Suspect]
     Route: 048
     Dates: end: 20111118
  2. ATENOLOL [Suspect]
     Route: 065
     Dates: end: 20111118
  3. HEMINEVRIN [Suspect]
     Route: 065
     Dates: end: 20111118

REACTIONS (2)
  - PETIT MAL EPILEPSY [None]
  - CONFUSIONAL STATE [None]
